FAERS Safety Report 11257996 (Version 1)
Quarter: 2015Q3

REPORT INFORMATION
  Report Type: Report from Study
  Country: US (occurrence: US)
  Receive Date: 20150710
  Receipt Date: 20150710
  Transmission Date: 20151125
  Serious: No
  Sender: FDA-Public Use
  Company Number: PHEH2015US013079

PATIENT
  Age: 16 Year
  Sex: Female

DRUGS (2)
  1. GLEEVEC [Suspect]
     Active Substance: IMATINIB MESYLATE
     Indication: HEADACHE
     Dosage: 400 MG, QD
     Route: 048
     Dates: start: 20150501, end: 20150601
  2. GLEEVEC [Suspect]
     Active Substance: IMATINIB MESYLATE
     Indication: NAUSEA

REACTIONS (4)
  - Vomiting [Not Recovered/Not Resolved]
  - Off label use [Unknown]
  - Headache [Unknown]
  - Nausea [Not Recovered/Not Resolved]

NARRATIVE: CASE EVENT DATE: 20150601
